FAERS Safety Report 9449377 (Version 1)
Quarter: 2013Q3

REPORT INFORMATION
  Report Type: Spontaneous
  Country: US (occurrence: US)
  Receive Date: 20130809
  Receipt Date: 20130809
  Transmission Date: 20140515
  Serious: No
  Sender: FDA-Public Use
  Company Number: US-009507513-1308USA001795

PATIENT
  Sex: Female

DRUGS (4)
  1. AZASITE [Suspect]
     Indication: EYELID THICKENING
     Dosage: UNK
     Route: 047
     Dates: start: 201304
  2. AZASITE [Suspect]
     Indication: CONJUNCTIVITIS
  3. TOBRADEX [Concomitant]
     Indication: EYELID THICKENING
     Dosage: UNK
     Dates: start: 201304
  4. TOBRADEX [Concomitant]
     Indication: CONJUNCTIVITIS

REACTIONS (1)
  - Drug ineffective [Unknown]
